FAERS Safety Report 5463407-X (Version None)
Quarter: 2007Q3

REPORT INFORMATION
  Report Type: 
  Country: None (occurrence: None)
  Receive Date: 20070920
  Receipt Date: 20070912
  Transmission Date: 20080115
  Serious: Yes (Hospitalization)
  Sender: FDA-Public Use
  Company Number: US-ASTRAZENECA-2007UW21604

PATIENT
  Sex: Female

DRUGS (6)
  1. SEROQUEL [Suspect]
     Indication: BIPOLAR DISORDER
     Route: 048
  2. NEURONTIN [Concomitant]
  3. DICLOFENAC [Concomitant]
  4. ANTABUSE [Concomitant]
  5. XANAX [Concomitant]
  6. LIPITOR [Concomitant]

REACTIONS (8)
  - AGITATION [None]
  - AMNESIA [None]
  - ANXIETY [None]
  - DISTURBANCE IN ATTENTION [None]
  - INSOMNIA [None]
  - PLATELET COUNT DECREASED [None]
  - RESTLESS LEGS SYNDROME [None]
  - VISION BLURRED [None]
